FAERS Safety Report 22167679 (Version 1)
Quarter: 2023Q2

REPORT INFORMATION
  Report Type: Spontaneous
  Country: US (occurrence: None)
  Receive Date: 20230401
  Receipt Date: 20230401
  Transmission Date: 20230722
  Serious: Yes (Life-Threatening, Hospitalization, Disabling, Congenital Anomaly)
  Sender: FDA-Public Use
  Company Number: None

PATIENT
  Age: 28 Year
  Sex: Female
  Weight: 55.79 kg

DRUGS (1)
  1. MIRENA [Suspect]
     Active Substance: LEVONORGESTREL

REACTIONS (9)
  - Fatigue [None]
  - Asthenia [None]
  - Dizziness [None]
  - Loss of personal independence in daily activities [None]
  - Pain [None]
  - Uterine leiomyoma [None]
  - Heavy menstrual bleeding [None]
  - Dizziness [None]
  - Stress [None]

NARRATIVE: CASE EVENT DATE: 20230101
